FAERS Safety Report 7406949-X (Version None)
Quarter: 2011Q2

REPORT INFORMATION
  Report Type: 
  Country: None (occurrence: None)
  Receive Date: 20110411
  Receipt Date: 20110405
  Transmission Date: 20111010
  Serious: No
  Sender: FDA-Public Use
  Company Number: US-PFIZER INC-2011020908

PATIENT
  Sex: Male
  Weight: 84 kg

DRUGS (6)
  1. LIPITOR [Suspect]
     Indication: BLOOD CHOLESTEROL INCREASED
     Dosage: 40 MG, 1X/DAY
     Route: 048
     Dates: start: 20080901, end: 20110201
  2. PLAVIX [Concomitant]
     Dosage: 75 MG, UNK
     Dates: end: 20110201
  3. PINDOLOL [Concomitant]
     Dosage: 5 MG, 2X/DAY
     Dates: end: 20110201
  4. FISH OIL [Concomitant]
     Dosage: UNK
     Dates: end: 20110201
  5. LOSARTAN [Concomitant]
     Dosage: 100 MG, DAILY
     Dates: end: 20110201
  6. ACETYLSALICYLIC ACID [Concomitant]
     Dosage: UNK
     Dates: end: 20110201

REACTIONS (3)
  - MYALGIA [None]
  - PAIN IN EXTREMITY [None]
  - MUSCULOSKELETAL PAIN [None]
